FAERS Safety Report 21213123 (Version 1)
Quarter: 2022Q3

REPORT INFORMATION
  Report Type: Spontaneous
  Country: US (occurrence: US)
  Receive Date: 20220815
  Receipt Date: 20220815
  Transmission Date: 20221026
  Serious: Yes (Life-Threatening, Other)
  Sender: FDA-Public Use
  Company Number: US-OTSUKA-2022_040395

PATIENT
  Sex: Male

DRUGS (4)
  1. REXULTI [Suspect]
     Active Substance: BREXPIPRAZOLE
     Indication: Depression
     Dosage: 0.25 MG
     Route: 065
  2. REXULTI [Suspect]
     Active Substance: BREXPIPRAZOLE
     Dosage: 3 MG, QD
     Route: 065
  3. REXULTI [Suspect]
     Active Substance: BREXPIPRAZOLE
     Dosage: 3 MG
  4. PROZAC [Concomitant]
     Active Substance: FLUOXETINE HYDROCHLORIDE
     Indication: Depression
     Dosage: UNK
     Route: 065

REACTIONS (3)
  - Suicidal ideation [Recovered/Resolved]
  - Withdrawal syndrome [Unknown]
  - Anxiety [Recovered/Resolved]
